FAERS Safety Report 12382989 (Version 1)
Quarter: 2016Q2

REPORT INFORMATION
  Report Type: Other
  Country: SA (occurrence: SA)
  Receive Date: 20160518
  Receipt Date: 20160518
  Transmission Date: 20160815
  Serious: Yes (Hospitalization)
  Sender: FDA-Public Use
  Company Number: SA-BAUSCH-BL-2016-011390

PATIENT
  Age: 21 Year
  Sex: Female

DRUGS (5)
  1. RETIN-A [Suspect]
     Active Substance: TRETINOIN
     Indication: ACNE
     Route: 061
  2. TRETINOIN CREAM 0.05% [Suspect]
     Active Substance: TRETINOIN
     Indication: ACNE
     Route: 061
  3. ISOTREXIN [Suspect]
     Active Substance: ERYTHROMYCIN\ISOTRETINOIN
     Indication: ACNE
     Route: 061
  4. VITAMIN A [Suspect]
     Active Substance: VITAMIN A
     Indication: ACNE
     Route: 061
  5. ACETAZOLAMIDE. [Suspect]
     Active Substance: ACETAZOLAMIDE
     Indication: INTRACRANIAL PRESSURE INCREASED
     Route: 065

REACTIONS (3)
  - Paraesthesia [Unknown]
  - Intracranial pressure increased [Recovered/Resolved]
  - Sudden visual loss [Recovered/Resolved]
